FAERS Safety Report 4667528-0 (Version None)
Quarter: 2005Q2

REPORT INFORMATION
  Report Type: 
  Country: None (occurrence: None)
  Receive Date: 20050520
  Receipt Date: 20050511
  Transmission Date: 20051028
  Serious: Yes (Other)
  Sender: FDA-Public Use
  Company Number: FR-JNJFOC-20050503088

PATIENT
  Age: 37 Year
  Sex: Female

DRUGS (2)
  1. EPITOMAX [Suspect]
     Indication: MIGRAINE PROPHYLAXIS
     Route: 049
  2. ORAL CONTRACEPTIVE [Concomitant]

REACTIONS (1)
  - CEREBROVASCULAR ACCIDENT [None]
